FAERS Safety Report 19443142 (Version 3)
Quarter: 2021Q4

REPORT INFORMATION
  Report Type: Other
  Country: US (occurrence: US)
  Receive Date: 20210621
  Receipt Date: 20211221
  Transmission Date: 20220303
  Serious: Yes (Hospitalization)
  Sender: FDA-Public Use
  Company Number: US-ACORDA-ACO_169269_2021

PATIENT
  Age: 60 Year
  Sex: Male

DRUGS (3)
  1. INBRIJA [Suspect]
     Active Substance: LEVODOPA
     Indication: On and off phenomenon
     Dosage: 84 MILLIGRAM, AS NEEDED, NOT TO EXCEED 5 DOSES PER DAY
     Dates: start: 20210604
  2. INBRIJA [Suspect]
     Active Substance: LEVODOPA
     Indication: Parkinson^s disease
  3. RYTARY [Suspect]
     Active Substance: CARBIDOPA\LEVODOPA
     Indication: Product used for unknown indication
     Dosage: EVERY 4 HOURS
     Route: 065

REACTIONS (13)
  - Loss of personal independence in daily activities [Not Recovered/Not Resolved]
  - Parkinson^s disease [Not Recovered/Not Resolved]
  - Tremor [Unknown]
  - Pain [Recovering/Resolving]
  - Anxiety [Unknown]
  - Ill-defined disorder [Unknown]
  - Dyspepsia [Unknown]
  - Wrong technique in device usage process [Unknown]
  - Therapeutic product effect variable [Unknown]
  - Product packaging difficult to open [Unknown]
  - Condition aggravated [Not Recovered/Not Resolved]
  - Adverse drug reaction [Unknown]
  - Cough [Unknown]

NARRATIVE: CASE EVENT DATE: 20210601
